FAERS Safety Report 16964856 (Version 1)
Quarter: 2019Q4

REPORT INFORMATION
  Report Type: Spontaneous
  Country: CA (occurrence: CA)
  Receive Date: 20191028
  Receipt Date: 20191028
  Transmission Date: 20200122
  Serious: Yes (Hospitalization, Other)
  Sender: FDA-Public Use
  Company Number: CA-TEVA-2019-CA-1127202

PATIENT
  Sex: Female

DRUGS (14)
  1. HYDROCHLOROTHIAZIDE. [Suspect]
     Active Substance: HYDROCHLOROTHIAZIDE
     Indication: PRODUCT USED FOR UNKNOWN INDICATION
     Dosage: 12.5 MILLIGRAM DAILY;
     Route: 048
  2. PULMICORT TURBUHALER [Concomitant]
     Active Substance: BUDESONIDE
  3. ADVAIR HFA [Concomitant]
     Active Substance: FLUTICASONE PROPIONATE\SALMETEROL XINAFOATE
  4. CLARITIN [Concomitant]
     Active Substance: LORATADINE
  5. OXEZE [Concomitant]
     Active Substance: FORMOTEROL FUMARATE
  6. VENTOLIN [Concomitant]
     Active Substance: ALBUTEROL SULFATE
  7. AVAPRO [Concomitant]
     Active Substance: IRBESARTAN
  8. BECLOMETHASONE DIPROPIONATE ORAL INHALER [Concomitant]
     Active Substance: BECLOMETHASONE DIPROPIONATE
  9. BENADRYL [Concomitant]
     Active Substance: DIPHENHYDRAMINE HYDROCHLORIDE
  10. BEROTEC [Concomitant]
     Active Substance: FENOTEROL HYDROBROMIDE
  11. XOLAIR [Suspect]
     Active Substance: OMALIZUMAB
     Indication: ASTHMA
     Route: 058
  12. AERIUS [Concomitant]
  13. REACTINE [CETIRIZINE HYDROCHLORIDE] [Concomitant]
     Active Substance: CETIRIZINE HYDROCHLORIDE
  14. FLOVENT [Concomitant]
     Active Substance: FLUTICASONE PROPIONATE

REACTIONS (6)
  - Hypothyroidism [Unknown]
  - Drug ineffective [Unknown]
  - Hypersensitivity [Unknown]
  - Wheezing [Unknown]
  - Asthma [Unknown]
  - Anaphylactic reaction [Unknown]
